FAERS Safety Report 5395310-8 (Version None)
Quarter: 2007Q3

REPORT INFORMATION
  Report Type: 
  Country: None (occurrence: None)
  Receive Date: 20070724
  Receipt Date: 20070712
  Transmission Date: 20080115
  Serious: Yes (Hospitalization)
  Sender: FDA-Public Use
  Company Number: FR-JNJFOC-20070703074

PATIENT
  Sex: Male
  Weight: 46 kg

DRUGS (16)
  1. DURAGESIC-100 [Suspect]
     Indication: DRUG USE FOR UNKNOWN INDICATION
     Route: 062
  2. RISPERDAL [Suspect]
     Indication: DRUG USE FOR UNKNOWN INDICATION
     Route: 048
  3. RIVOTRIL [Suspect]
     Indication: DRUG USE FOR UNKNOWN INDICATION
     Route: 065
  4. LAROXYL [Suspect]
     Indication: DRUG USE FOR UNKNOWN INDICATION
     Dosage: 80 GTE
     Route: 065
  5. TRANXENE [Suspect]
     Indication: DRUG USE FOR UNKNOWN INDICATION
     Route: 048
  6. NEURONTIN [Suspect]
     Indication: DRUG USE FOR UNKNOWN INDICATION
     Route: 065
  7. NORVIR [Concomitant]
     Route: 065
  8. ZECLAR [Concomitant]
     Route: 065
  9. TRIZIVIR [Concomitant]
     Route: 065
  10. TELZIR [Concomitant]
     Route: 065
  11. ANSATIPINE [Concomitant]
     Route: 065
  12. LASIX [Concomitant]
     Route: 065
  13. ALDACTONE [Concomitant]
     Route: 065
  14. TRACLEER [Concomitant]
     Route: 065
  15. XATRAL LP [Concomitant]
     Route: 065
  16. BACTRIM [Concomitant]
     Route: 065

REACTIONS (4)
  - BRADYPNOEA [None]
  - CONFUSIONAL STATE [None]
  - SOMNOLENCE [None]
  - THERAPEUTIC AGENT TOXICITY [None]
